FAERS Safety Report 7241387-4 (Version None)
Quarter: 2011Q1

REPORT INFORMATION
  Report Type: 
  Country: None (occurrence: None)
  Receive Date: 20110120
  Receipt Date: 20110120
  Transmission Date: 20110831
  Serious: No
  Sender: FDA-Public Use
  Company Number: None

PATIENT
  Age: 49 Year
  Sex: Male
  Weight: 84.36 kg

DRUGS (1)
  1. INVEGA [Suspect]
     Indication: SCHIZOPHRENIA
     Dosage: 9 MG QAM PO
     Route: 048
     Dates: start: 20110111

REACTIONS (3)
  - AGITATION [None]
  - CONDITION AGGRAVATED [None]
  - PSYCHOTIC DISORDER [None]
